FAERS Safety Report 5364971-1 (Version None)
Quarter: 2007Q2

REPORT INFORMATION
  Report Type: 
  Country: None (occurrence: None)
  Receive Date: 20070621
  Receipt Date: 20070612
  Transmission Date: 20071010
  Serious: Yes (Life-Threatening)
  Sender: FDA-Public Use
  Company Number: JP-JNJFOC-20070602815

PATIENT
  Age: 72 Year
  Sex: Male

DRUGS (7)
  1. DUROTEP [Suspect]
     Route: 062
  2. DUROTEP [Suspect]
     Route: 062
  3. DUROTEP [Suspect]
     Route: 062
  4. DUROTEP [Suspect]
     Indication: DRUG USE FOR UNKNOWN INDICATION
     Route: 062
  5. OPSO [Concomitant]
     Route: 048
  6. FLUOROURACIL [Concomitant]
     Indication: CHEMOTHERAPY
     Route: 065
  7. CISPLATIN [Concomitant]
     Indication: CHEMOTHERAPY
     Route: 065

REACTIONS (3)
  - NAUSEA [None]
  - SUICIDE ATTEMPT [None]
  - VOMITING [None]
